FAERS Safety Report 5519031-3 (Version None)
Quarter: 2007Q4

REPORT INFORMATION
  Report Type: 
  Country: None (occurrence: None)
  Receive Date: 20071116
  Receipt Date: 20071108
  Transmission Date: 20080405
  Serious: Yes (Hospitalization)
  Sender: FDA-Public Use
  Company Number: PHHO2007ES18562

PATIENT
  Age: 70 Year
  Sex: Male
  Weight: 60 kg

DRUGS (4)
  1. AMN107 [Suspect]
     Indication: GASTROINTESTINAL STROMAL TUMOUR
     Dosage: 800 MG, QD
     Route: 048
     Dates: start: 20071019, end: 20071107
  2. FUROSEMIDE [Concomitant]
  3. INSULIN [Concomitant]
  4. ASPIRIN [Concomitant]

REACTIONS (5)
  - DISEASE PROGRESSION [None]
  - DRUG INEFFECTIVE [None]
  - HEPATIC FAILURE [None]
  - MYOCARDIAL INFARCTION [None]
  - URINARY TRACT INFECTION [None]
